FAERS Safety Report 4497647-3 (Version None)
Quarter: 2004Q4

REPORT INFORMATION
  Report Type: 
  Country: None (occurrence: None)
  Receive Date: 20041103
  Receipt Date: 20041019
  Transmission Date: 20050328
  Serious: Yes (Death)
  Sender: FDA-Public Use
  Company Number: US-JNJFOC-20041005823

PATIENT
  Age: 43 Year
  Sex: Male

DRUGS (1)
  1. DURAGESIC [Suspect]
     Indication: DRUG USE FOR UNKNOWN INDICATION
     Route: 062

REACTIONS (4)
  - ACCIDENTAL DEATH [None]
  - CIRCULATORY COLLAPSE [None]
  - DRUG ABUSER [None]
  - HYPERTENSIVE HEART DISEASE [None]
